FAERS Safety Report 5777379-1 (Version None)
Quarter: 2008Q2

REPORT INFORMATION
  Report Type: 
  Country: None (occurrence: None)
  Receive Date: 20080616
  Receipt Date: 20080604
  Transmission Date: 20081010
  Serious: Yes (Hospitalization)
  Sender: FDA-Public Use
  Company Number: 2008AL006311

PATIENT
  Age: 87 Year
  Sex: Male
  Weight: 97.977 kg

DRUGS (8)
  1. DIGOXIN [Suspect]
     Indication: CARDIAC DISORDER
     Dosage: 0.125MG DAILY PO
     Route: 048
  2. SYNTHROID [Concomitant]
  3. LIPITOR [Concomitant]
  4. PROSCAR [Concomitant]
  5. FLOMAX [Concomitant]
  6. ASPIRIN [Concomitant]
  7. MONOPRIL [Concomitant]
  8. COUMADIN [Concomitant]

REACTIONS (3)
  - DIZZINESS [None]
  - FALL [None]
  - THERAPEUTIC AGENT TOXICITY [None]
